FAERS Safety Report 16861937 (Version 3)
Quarter: 2019Q4

REPORT INFORMATION
  Report Type: Spontaneous
  Country: US (occurrence: US)
  Receive Date: 20190927
  Receipt Date: 20191017
  Transmission Date: 20200122
  Serious: No
  Sender: FDA-Public Use
  Company Number: US-UNITED THERAPEUTICS-UNT-2019-014023

PATIENT
  Age: 67 Year
  Sex: Female
  Weight: 51.47 kg

DRUGS (3)
  1. TYVASO [Suspect]
     Active Substance: TREPROSTINIL
     Dosage: UNK
     Dates: end: 20190916
  2. DALIRESP [Suspect]
     Active Substance: ROFLUMILAST
     Indication: PRODUCT USED FOR UNKNOWN INDICATION
     Dosage: 25 ?G, UNK
     Route: 065
     Dates: start: 201908
  3. TYVASO [Suspect]
     Active Substance: TREPROSTINIL
     Indication: PULMONARY ARTERIAL HYPERTENSION
     Dosage: 18-54 ?G, QID
     Dates: start: 20190813

REACTIONS (17)
  - Decreased appetite [Unknown]
  - Choking [Unknown]
  - Cough [Unknown]
  - Muscle spasms [Unknown]
  - Flushing [Unknown]
  - Weight decreased [Unknown]
  - Taste disorder [Unknown]
  - Retching [Recovered/Resolved]
  - Constipation [Unknown]
  - Nausea [Unknown]
  - Headache [Unknown]
  - Hot flush [Unknown]
  - Blood glucose increased [Not Recovered/Not Resolved]
  - Hypersomnia [Unknown]
  - Dizziness [Recovered/Resolved]
  - Vomiting [Recovered/Resolved]
  - Dyspnoea [Not Recovered/Not Resolved]

NARRATIVE: CASE EVENT DATE: 2019
